FAERS Safety Report 17454708 (Version 1)
Quarter: 2020Q1

REPORT INFORMATION
  Report Type: Spontaneous
  Country: US (occurrence: US)
  Receive Date: 20200224
  Receipt Date: 20200224
  Transmission Date: 20200409
  Serious: Yes (Life-Threatening, Hospitalization)
  Sender: FDA-Public Use
  Company Number: None

PATIENT
  Age: 75 Year
  Sex: Female
  Weight: 74.25 kg

DRUGS (1)
  1. XELPROS [Suspect]
     Active Substance: LATANOPROST
     Indication: OPEN ANGLE GLAUCOMA
     Dosage: ?          QUANTITY:1 DROP(S);?
     Route: 047
     Dates: start: 20200114, end: 20200224

REACTIONS (6)
  - Dyspnoea [None]
  - Chest discomfort [None]
  - Eye pain [None]
  - Presyncope [None]
  - Wheezing [None]
  - Syncope [None]

NARRATIVE: CASE EVENT DATE: 20200211
